FAERS Safety Report 14256410 (Version 2)
Quarter: 2017Q4

REPORT INFORMATION
  Report Type: Report from Study
  Country: AU (occurrence: AU)
  Receive Date: 20171206
  Receipt Date: 20171222
  Transmission Date: 20180321
  Serious: Yes (Other)
  Sender: FDA-Public Use
  Company Number: AU-BEH-2017085497

PATIENT
  Age: 32 Year
  Sex: Female

DRUGS (2)
  1. RIASTAP [Suspect]
     Active Substance: FIBRINOGEN HUMAN
     Indication: HYPOFIBRINOGENAEMIA
     Dosage: 2 G, TOT
     Route: 042
     Dates: start: 20170918, end: 20170918
  2. RIASTAP [Suspect]
     Active Substance: FIBRINOGEN HUMAN
     Indication: TRAUMATIC HAEMORRHAGE
     Dosage: 5 G, TOT
     Route: 042
     Dates: start: 20170918, end: 20170918

REACTIONS (2)
  - Rhabdomyolysis [Recovered/Resolved]
  - Thrombocytosis [Recovered/Resolved]

NARRATIVE: CASE EVENT DATE: 20170918
